FAERS Safety Report 6945160-3 (Version None)
Quarter: 2010Q3

REPORT INFORMATION
  Report Type: 
  Country: None (occurrence: None)
  Receive Date: 20100827
  Receipt Date: 20100819
  Transmission Date: 20110219
  Serious: Yes (Other)
  Sender: FDA-Public Use
  Company Number: US-AMGEN-QUU394246

PATIENT
  Sex: Female
  Weight: 89.9 kg

DRUGS (9)
  1. NPLATE [Suspect]
     Indication: IDIOPATHIC THROMBOCYTOPENIC PURPURA
     Route: 058
     Dates: start: 20090826, end: 20100127
  2. ATIVAN [Concomitant]
     Dates: start: 20091002
  3. OXYCODONE HCL [Concomitant]
     Dates: start: 20091007
  4. ULTRAM [Concomitant]
     Dates: start: 20090923
  5. MULTIVITAMINS AND IRON [Concomitant]
  6. LISINOPRIL [Concomitant]
  7. ATENOLOL [Concomitant]
  8. NOVOLIN 70/30 [Concomitant]
  9. LOVAZA [Concomitant]

REACTIONS (10)
  - ABDOMINAL PAIN [None]
  - ANAEMIA [None]
  - ARTHRALGIA [None]
  - METASTASES TO BONE [None]
  - MOBILITY DECREASED [None]
  - MYALGIA [None]
  - OSTEONECROSIS [None]
  - RENAL CYST [None]
  - THERAPEUTIC RESPONSE DECREASED [None]
  - UTERINE LEIOMYOMA [None]
